FAERS Safety Report 8268057-8 (Version None)
Quarter: 2012Q2

REPORT INFORMATION
  Report Type: 
  Country: None (occurrence: None)
  Receive Date: 20120409
  Receipt Date: 20120403
  Transmission Date: 20120825
  Serious: Yes (Hospitalization, Disabling, Other)
  Sender: FDA-Public Use
  Company Number: US-PFIZER INC-2009292576

PATIENT
  Sex: Male
  Weight: 63.492 kg

DRUGS (11)
  1. LISINOPRIL [Concomitant]
     Dosage: UNK
  2. LANTUS [Concomitant]
     Dosage: 25 MG
  3. PLAVIX [Concomitant]
     Indication: ANTICOAGULANT THERAPY
     Dosage: 75 MG DAILY
  4. NEURONTIN [Suspect]
     Indication: NEUROPATHY PERIPHERAL
     Dosage: 35 MG, 1X/DAY
  5. GLUCOTROL XL [Suspect]
     Dosage: UNK
  6. LANTUS [Concomitant]
     Indication: DIABETES MELLITUS
     Dosage: 30 MG
  7. VICODIN [Concomitant]
     Indication: PAIN
     Dosage: UNK
  8. NEURONTIN [Suspect]
     Indication: NERVE INJURY
     Dosage: 800 MG, 3X/DAY
     Route: 048
     Dates: start: 20040101
  9. GLIPIZIDE [Concomitant]
     Indication: DIABETES MELLITUS
     Dosage: UNK
  10. NEURONTIN [Suspect]
     Indication: PAIN
  11. INSULIN [Concomitant]
     Indication: DIABETES MELLITUS
     Dosage: UNK

REACTIONS (10)
  - GAIT DISTURBANCE [None]
  - BLOOD GLUCOSE DECREASED [None]
  - VISUAL IMPAIRMENT [None]
  - MYOCARDIAL INFARCTION [None]
  - HEMIPARESIS [None]
  - DYSARTHRIA [None]
  - TREMOR [None]
  - PAIN IN EXTREMITY [None]
  - CEREBROVASCULAR ACCIDENT [None]
  - PARALYSIS [None]
